FAERS Safety Report 23379898 (Version 2)
Quarter: 2024Q1

REPORT INFORMATION
  Report Type: Spontaneous
  Country: US (occurrence: None)
  Receive Date: 20240108
  Receipt Date: 20240201
  Transmission Date: 20240410
  Serious: Yes (Other)
  Sender: FDA-Public Use
  Company Number: US-ROCHE-3486372

PATIENT
  Sex: Male
  Weight: 90.8 kg

DRUGS (9)
  1. ACTEMRA [Suspect]
     Active Substance: TOCILIZUMAB
     Indication: Giant cell arteritis
     Dosage: INJECTION
     Route: 058
  2. ACTEMRA [Suspect]
     Active Substance: TOCILIZUMAB
  3. ACTEMRA [Suspect]
     Active Substance: TOCILIZUMAB
     Indication: Giant cell arteritis
  4. ACTEMRA [Suspect]
     Active Substance: TOCILIZUMAB
  5. PREDNISONE [Suspect]
     Active Substance: PREDNISONE
     Indication: Giant cell arteritis
     Route: 048
  6. PREDNISONE [Suspect]
     Active Substance: PREDNISONE
     Indication: Giant cell arteritis
     Route: 065
  7. PREDNISONE [Suspect]
     Active Substance: PREDNISONE
     Route: 065
  8. PREDNISONE [Suspect]
     Active Substance: PREDNISONE
     Route: 065
  9. PREDNISONE [Suspect]
     Active Substance: PREDNISONE
     Route: 065

REACTIONS (17)
  - Concussion [Unknown]
  - Loss of consciousness [Unknown]
  - Squamous cell carcinoma [Unknown]
  - Infection [Unknown]
  - Polyp [Unknown]
  - Amnesia [Not Recovered/Not Resolved]
  - Giant cell arteritis [Unknown]
  - Toothache [Unknown]
  - Weight decreased [Not Recovered/Not Resolved]
  - Glycosylated haemoglobin increased [Unknown]
  - Bone disorder [Unknown]
  - Pain in jaw [Unknown]
  - Headache [Unknown]
  - Diplopia [Unknown]
  - Impaired healing [Unknown]
  - Road traffic accident [Unknown]
  - Off label use [Unknown]

NARRATIVE: CASE EVENT DATE: 20231118
